FAERS Safety Report 9797475 (Version 1)
Quarter: 2014Q1

REPORT INFORMATION
  Report Type: Spontaneous
  Country: US (occurrence: None)
  Receive Date: 20140102
  Receipt Date: 20140102
  Transmission Date: 20141002
  Serious: Yes (Other)
  Sender: FDA-Public Use
  Company Number: None

PATIENT
  Age: 44 Year
  Sex: Female
  Weight: 73.03 kg

DRUGS (1)
  1. VENLAFAXINE [Suspect]
     Indication: DEPRESSION
     Dosage: 1 CAPSULE
     Route: 048
     Dates: start: 20131229, end: 20140101

REACTIONS (8)
  - Product substitution issue [None]
  - Product quality issue [None]
  - Depressive symptom [None]
  - Headache [None]
  - Vertigo [None]
  - Disturbance in attention [None]
  - Agitation [None]
  - Nausea [None]
